FAERS Safety Report 20963810 (Version 1)
Quarter: 2022Q2

REPORT INFORMATION
  Report Type: Spontaneous
  Country: US (occurrence: US)
  Receive Date: 20220615
  Receipt Date: 20220615
  Transmission Date: 20220721
  Serious: Yes (Other)
  Sender: FDA-Public Use
  Company Number: US-JNJFOC-20220609544

PATIENT
  Sex: Male

DRUGS (2)
  1. SPRAVATO [Suspect]
     Active Substance: ESKETAMINE
     Indication: Product used for unknown indication
     Dosage: INITIATION PHASE
  2. SPRAVATO [Suspect]
     Active Substance: ESKETAMINE
     Dosage: MAINTENANCE PHASE

REACTIONS (1)
  - Urinary tract disorder [Unknown]
